FAERS Safety Report 17428279 (Version 1)
Quarter: 2020Q1

REPORT INFORMATION
  Report Type: Spontaneous
  Country: US (occurrence: US)
  Receive Date: 20200214
  Receipt Date: 20200214
  Transmission Date: 20200409
  Serious: Yes (Other)
  Sender: FDA-Public Use
  Company Number: None

PATIENT
  Sex: Female

DRUGS (10)
  1. NEURONTIN TAB 800MG [Concomitant]
     Dates: start: 20160107
  2. BUPROPN HCL TAB 150MG XL [Concomitant]
     Dates: start: 20190904
  3. ACETAZOLAMID TAB 250MG [Concomitant]
     Dates: start: 20200103
  4. FLUVOXAMINE CAP 100MG ER [Concomitant]
     Dates: start: 20190905
  5. XELJANZ [Concomitant]
     Active Substance: TOFACITINIB CITRATE
     Dates: start: 20190823
  6. NUVARING MIS [Concomitant]
     Dates: start: 20160107
  7. CIMZIA [Suspect]
     Active Substance: CERTOLIZUMAB PEGOL
     Indication: RHEUMATOID ARTHRITIS
     Dosage: ?          OTHER FREQUENCY:*SEE BELOW;?
     Route: 058
     Dates: start: 20171023
  8. FLUTICASONE SPR 50MCG [Concomitant]
     Active Substance: FLUTICASONE
     Dates: start: 20200205
  9. AMOX/K CLAV TAB 875-125 [Concomitant]
     Dates: start: 20200205
  10. CLONAZEPAM TAB 1MG [Concomitant]
     Active Substance: CLONAZEPAM
     Dates: start: 20191210

REACTIONS (4)
  - Musculoskeletal stiffness [None]
  - Pain [None]
  - Condition aggravated [None]
  - Pyrexia [None]
